FAERS Safety Report 4754802-2 (Version None)
Quarter: 2005Q3

REPORT INFORMATION
  Report Type: 
  Country: None (occurrence: None)
  Receive Date: 20050826
  Receipt Date: 20050826
  Transmission Date: 20060218
  Serious: Yes (Hospitalization, Other)
  Sender: FDA-Public Use
  Company Number: None

PATIENT
  Sex: Male
  Weight: 88.1 kg

DRUGS (4)
  1. ETOPOSIDE [Suspect]
     Indication: SMALL CELL LUNG CANCER STAGE UNSPECIFIED
     Dosage: SEE IMAGE
     Route: 042
     Dates: start: 20050613, end: 20050816
  2. ETOPOSIDE [Suspect]
     Indication: SMALL CELL LUNG CANCER STAGE UNSPECIFIED
     Dosage: SEE IMAGE
     Route: 042
     Dates: start: 20050816
  3. CISPLATIN [Suspect]
     Dosage: SEE IMAGE
     Route: 042
     Dates: start: 20050613, end: 20050816
  4. CISPLATIN [Suspect]
     Dosage: SEE IMAGE
     Route: 042
     Dates: start: 20050816

REACTIONS (8)
  - ASTHENIA [None]
  - ATRIAL FIBRILLATION [None]
  - DIZZINESS [None]
  - HYPERGLYCAEMIA [None]
  - LUNG INFILTRATION [None]
  - OXYGEN SATURATION DECREASED [None]
  - PNEUMONIA [None]
  - PNEUMONITIS [None]
